FAERS Safety Report 4459503-6 (Version None)
Quarter: 2004Q3

REPORT INFORMATION
  Report Type: 
  Country: None (occurrence: None)
  Receive Date: 20040910
  Receipt Date: 20040706
  Transmission Date: 20050211
  Serious: Yes (Hospitalization)
  Sender: FDA-Public Use
  Company Number: 2004219327US

PATIENT
  Age: 57 Year
  Sex: Male
  Weight: 83.9 kg

DRUGS (5)
  1. BEXTRA [Suspect]
     Indication: ARTHRALGIA
     Dosage: 10 MG, QD, ORAL
     Route: 048
     Dates: start: 20030101, end: 20040610
  2. BEXTRA [Suspect]
     Dosage: ORAL
     Route: 048
     Dates: start: 20040616
  3. ASPIRIN [Concomitant]
  4. DIOVAN [Concomitant]
  5. ZETIA [Concomitant]

REACTIONS (1)
  - EPISTAXIS [None]
